FAERS Safety Report 9840683 (Version 2)
Quarter: 2014Q3

REPORT INFORMATION
  Report Type: Spontaneous
  Country: US (occurrence: US)
  Receive Date: 20140124
  Receipt Date: 20140729
  Transmission Date: 20150326
  Serious: Yes (Hospitalization, Other)
  Sender: FDA-Public Use
  Company Number: US-009507513-1401USA010277

PATIENT
  Sex: Female

DRUGS (1)
  1. NUVARING [Suspect]
     Active Substance: ETHINYL ESTRADIOL\ETONOGESTREL
     Indication: CONTRACEPTION
     Dosage: 0.12-0.015 MG/24 HR RING
     Route: 067
     Dates: start: 200904, end: 20101024

REACTIONS (3)
  - Blood potassium decreased [Unknown]
  - Pulmonary embolism [Unknown]
  - Haemangioma of liver [Unknown]

NARRATIVE: CASE EVENT DATE: 20101024
